APPROVED DRUG PRODUCT: PIROXICAM
Active Ingredient: PIROXICAM
Strength: 10MG
Dosage Form/Route: CAPSULE;ORAL
Application: A074808 | Product #001
Applicant: EGIS PHARMACEUTICALS
Approved: Jul 8, 1997 | RLD: No | RS: No | Type: DISCN